FAERS Safety Report 9266057 (Version 1)
Quarter: 2013Q2

REPORT INFORMATION
  Report Type: Spontaneous
  Country: US (occurrence: US)
  Receive Date: 20130501
  Receipt Date: 20130501
  Transmission Date: 20140414
  Serious: Yes (Other)
  Sender: FDA-Public Use
  Company Number: US-TEVA-392630USA

PATIENT
  Age: 55 Year
  Sex: Female

DRUGS (1)
  1. LOVASTATIN [Suspect]
     Route: 048
     Dates: start: 2009

REACTIONS (2)
  - Crohn^s disease [Recovered/Resolved]
  - Rash [Recovered/Resolved]
